FAERS Safety Report 24910435 (Version 1)
Quarter: 2025Q1

REPORT INFORMATION
  Report Type: Report from Study
  Country: IE (occurrence: IE)
  Receive Date: 20250131
  Receipt Date: 20250131
  Transmission Date: 20250408
  Serious: Yes (Other)
  Sender: TAKEDA
  Company Number: IE-TAKEDA-2024TUS079117

PATIENT
  Age: 74 Year
  Sex: Male

DRUGS (11)
  1. HUMAN IMMUNOGLOBULIN G\HYALURONIDASE RECOMBINANT HUMAN [Suspect]
     Active Substance: HUMAN IMMUNOGLOBULIN G\HYALURONIDASE (HUMAN RECOMBINANT)
     Indication: Hypogammaglobulinaemia
     Dosage: 40 GRAM, Q4WEEKS
     Dates: start: 20240802
  2. SYMBICORT [Concomitant]
     Active Substance: BUDESONIDE\FORMOTEROL FUMARATE DIHYDRATE
     Dosage: 200 MICROGRAM, BID
  3. BISOPROLOL [Concomitant]
     Active Substance: BISOPROLOL
     Dosage: 2.5 MILLIGRAM, QD
  4. APIXABAN [Concomitant]
     Active Substance: APIXABAN
     Dosage: 2.5 MILLIGRAM, BID
  5. SULFAMETHOXAZOLE\TRIMETHOPRIM [Concomitant]
     Active Substance: SULFAMETHOXAZOLE\TRIMETHOPRIM
     Dosage: 80.4 MILLIGRAM, 3/WEEK
  6. AZITHROMYCIN [Concomitant]
     Active Substance: AZITHROMYCIN
     Dosage: 250 MILLIGRAM, 3/WEEK
  7. CYCLIZINE [Concomitant]
     Active Substance: CYCLIZINE
     Dosage: 50 MILLIGRAM, TID
  8. VALACYCLOVIR HYDROCHLORIDE [Concomitant]
     Active Substance: VALACYCLOVIR HYDROCHLORIDE
     Dosage: 500 MILLIGRAM, QD
  9. INDAPAMIDE\PERINDOPRIL [Concomitant]
     Active Substance: INDAPAMIDE\PERINDOPRIL
     Dosage: 10 MILLIGRAM, QD
  10. CHOLECALCIFEROL [Concomitant]
     Active Substance: CHOLECALCIFEROL
     Dosage: 800 INTERNATIONAL UNIT, QD
  11. LERCANIDIPINE [Concomitant]
     Active Substance: LERCANIDIPINE
     Dosage: 10 MILLIGRAM, QD

REACTIONS (3)
  - Lower respiratory tract infection [Unknown]
  - Inappropriate schedule of product administration [Recovering/Resolving]
  - Infusion site erythema [Recovering/Resolving]

NARRATIVE: CASE EVENT DATE: 20240802
